FAERS Safety Report 7204649-2 (Version None)
Quarter: 2010Q4

REPORT INFORMATION
  Report Type: 
  Country: None (occurrence: None)
  Receive Date: 20101230
  Receipt Date: 20101228
  Transmission Date: 20110411
  Serious: Yes (Other)
  Sender: FDA-Public Use
  Company Number: FR-SANOFI-AVENTIS-2010SA070182

PATIENT
  Age: 99 Year
  Sex: Female
  Weight: 40 kg

DRUGS (6)
  1. IXPRIM [Suspect]
     Indication: PAIN
     Route: 048
     Dates: start: 20101015, end: 20101019
  2. PLAVIX [Suspect]
     Route: 048
  3. IMOVANE [Suspect]
     Route: 048
  4. BROMAZEPAM [Suspect]
     Route: 048
  5. LOXEN [Suspect]
     Route: 048
  6. GLYCERYL TRINITRATE [Suspect]
     Route: 048

REACTIONS (2)
  - CONDITION AGGRAVATED [None]
  - PERSECUTORY DELUSION [None]
